FAERS Safety Report 9973635 (Version 1)
Quarter: 2014Q1

REPORT INFORMATION
  Report Type: Spontaneous
  Country: US (occurrence: US)
  Receive Date: 20140306
  Receipt Date: 20140306
  Transmission Date: 20141002
  Serious: No
  Sender: FDA-Public Use
  Company Number: US-GILEAD-2014-0095554

PATIENT
  Sex: Male

DRUGS (20)
  1. SOVALDI [Suspect]
     Indication: HEPATITIS C
     Dosage: UNK
     Route: 048
     Dates: start: 20140118
  2. RIBAVIRIN [Suspect]
     Indication: HEPATITIS C
     Route: 065
  3. NORVIR [Concomitant]
     Dosage: 100 MG, QD
     Route: 048
  4. REYATAZ [Concomitant]
     Dosage: 300 MG, QD
     Route: 048
  5. FLEXERIL                           /00821801/ [Concomitant]
     Indication: MUSCLE SPASMS
     Dosage: 10 MG, TID PRN
     Route: 048
  6. ALDACTONE                          /00006201/ [Concomitant]
     Dosage: 25 MG, QOD
  7. LASIX                              /00032601/ [Concomitant]
     Dosage: 20 MG, QD
     Route: 048
  8. VENTOLIN HFA [Concomitant]
     Indication: DYSPNOEA
     Dosage: 2 PUFFS (DF), Q4HRS PRN
     Route: 055
  9. VENTOLIN HFA [Concomitant]
     Indication: WHEEZING
  10. EPZICOM [Concomitant]
     Dosage: 1 TABLET (DF), QD
     Route: 048
  11. ZYLOPRIM [Concomitant]
     Dosage: 100 MG, QD
     Route: 048
  12. COLCRYS [Concomitant]
     Dosage: 0.6 MG, QD
     Route: 048
  13. CHANTIX [Concomitant]
     Dosage: 1 MG, UNK
  14. CHANTIX [Concomitant]
     Dosage: 0.5 MG, BID
     Route: 048
  15. LYRICA [Concomitant]
     Dosage: 150 MG, BID
     Route: 048
  16. VITAMIN D3 [Concomitant]
     Dosage: 1 CAPSULE (DF), QD
     Route: 048
  17. VICODIN ES [Concomitant]
     Dosage: 1 TABLET (DF), Q8HRS PRN
     Route: 048
  18. ZITHROMAX Z-PAK [Concomitant]
     Dosage: 2 TABLETS (DF), ONCE
     Route: 048
  19. ZITHROMAX Z-PAK [Concomitant]
     Dosage: 1 TABLET (DF), QD X 4 DAYS
     Route: 048
  20. GABAPENTIN [Concomitant]
     Dosage: 300 MG, TID
     Route: 048

REACTIONS (2)
  - Feeling abnormal [Unknown]
  - Myositis [Unknown]
